FAERS Safety Report 16810113 (Version 1)
Quarter: 2019Q3

REPORT INFORMATION
  Report Type: Spontaneous
  Country: CN (occurrence: CN)
  Receive Date: 20190916
  Receipt Date: 20190916
  Transmission Date: 20191005
  Serious: Yes (Death, Hospitalization)
  Sender: FDA-Public Use
  Company Number: CN-AMNEAL PHARMACEUTICALS-2019-AMRX-01853

PATIENT
  Age: 78 Year
  Sex: Male

DRUGS (9)
  1. MEROPENEM. [Concomitant]
     Active Substance: MEROPENEM
     Indication: PNEUMONIA
     Dosage: 0.5 GRAM, EVERY 12HR
     Route: 065
  2. SULBACTAM [Concomitant]
     Active Substance: SULBACTAM
     Indication: PNEUMONIA
     Dosage: 1 GRAM, EVERY 12HR
     Route: 065
  3. VORICONAZOLE. [Concomitant]
     Active Substance: VORICONAZOLE
     Indication: PRODUCT USED FOR UNKNOWN INDICATION
     Dosage: 400 MILLIGRAM, EVERY 12HR
     Route: 065
  4. CEFOPERAZONE [Concomitant]
     Active Substance: CEFOPERAZONE
     Indication: PNEUMONIA
     Dosage: 1 GRAM, EVERY 12HR
     Route: 065
  5. REPAGLINIDE. [Concomitant]
     Active Substance: REPAGLINIDE
     Dosage: 1 MILLIGRAM (WITH DINNER)
     Route: 065
  6. TIGECYCLINE. [Suspect]
     Active Substance: TIGECYCLINE
     Indication: PNEUMONIA
     Dosage: 100 MILLIGRAM, EVERY 12HR
     Route: 042
  7. NIFEDIPIN [Concomitant]
     Active Substance: NIFEDIPINE
     Indication: HYPERTENSION
     Dosage: UNK
     Route: 065
  8. PREDNISONE. [Concomitant]
     Active Substance: PREDNISONE
     Indication: PRODUCT USED FOR UNKNOWN INDICATION
     Dosage: 35 MILLIGRAM, DAILY
     Route: 048
  9. REPAGLINIDE. [Concomitant]
     Active Substance: REPAGLINIDE
     Indication: PRODUCT USED FOR UNKNOWN INDICATION
     Dosage: 0.5 MILLIGRAM (WITH DINNER)
     Route: 065

REACTIONS (2)
  - Pneumonia klebsiella [Fatal]
  - Hypoglycaemia [Recovered/Resolved]
